FAERS Safety Report 18963464 (Version 1)
Quarter: 2021Q1

REPORT INFORMATION
  Report Type: Spontaneous
  Country: US (occurrence: US)
  Receive Date: 20210303
  Receipt Date: 20210303
  Transmission Date: 20210420
  Serious: Yes (Other)
  Sender: FDA-Public Use
  Company Number: US-MYLANLABS-2021M1013061

PATIENT
  Sex: Male

DRUGS (15)
  1. RISPERDAL CONSTA [Suspect]
     Active Substance: RISPERIDONE
     Dosage: 50 MILLIGRAM, BIWEEKLY
     Route: 030
  2. ILOPERIDONE. [Suspect]
     Active Substance: ILOPERIDONE
     Indication: SCHIZOPHRENIA
     Dosage: 12 MILLIGRAM, BID
     Route: 065
  3. RISPERDAL CONSTA [Suspect]
     Active Substance: RISPERIDONE
     Indication: SCHIZOPHRENIA
     Dosage: UNKNOWN STARING DOSE
     Route: 030
  4. LURASIDONE [Concomitant]
     Active Substance: LURASIDONE
     Indication: SCHIZOPHRENIA
     Dosage: UNK
     Route: 065
  5. CLOZAPINE. [Suspect]
     Active Substance: CLOZAPINE
     Indication: SCHIZOPHRENIA
     Dosage: 300 MILLIGRAM, BID
     Route: 065
  6. PALIPERIDONE. [Concomitant]
     Active Substance: PALIPERIDONE
     Indication: SCHIZOPHRENIA
     Dosage: 12 MILLIGRAM, QD
     Route: 065
  7. OLANZAPINE. [Concomitant]
     Active Substance: OLANZAPINE
     Indication: SCHIZOPHRENIA
     Dosage: UNK
     Route: 065
  8. SERTRALINE [Concomitant]
     Active Substance: SERTRALINE HYDROCHLORIDE
     Indication: DEPRESSIVE SYMPTOM
     Dosage: EPISODIC TREATMENT
     Route: 065
  9. METFORMIN [Concomitant]
     Active Substance: METFORMIN HYDROCHLORIDE
     Indication: PRODUCT USED FOR UNKNOWN INDICATION
     Dosage: UNK
     Route: 065
  10. QUETIAPINE. [Concomitant]
     Active Substance: QUETIAPINE
     Indication: SCHIZOPHRENIA
     Dosage: UNK
     Route: 065
  11. FLUOXETINE [Concomitant]
     Active Substance: FLUOXETINE HYDROCHLORIDE
     Indication: DEPRESSIVE SYMPTOM
     Dosage: EPISODIC TREATMENT
     Route: 065
  12. HALOPERIDOL. [Suspect]
     Active Substance: HALOPERIDOL
     Indication: SCHIZOPHRENIA
     Dosage: UNSPECIFIED STARTING DOSE...
     Route: 065
  13. HALOPERIDOL. [Suspect]
     Active Substance: HALOPERIDOL
     Dosage: 20 MILLIGRAM, QD
     Route: 065
  14. RISPERIDONE. [Suspect]
     Active Substance: RISPERIDONE
     Indication: SCHIZOPHRENIA
     Dosage: 6 MILLIGRAM, QD
     Route: 065
  15. INVEGA TRINZA [Concomitant]
     Active Substance: PALIPERIDONE PALMITATE
     Indication: SCHIZOPHRENIA
     Dosage: 546 MILLIGRAM, Q3MONTHS
     Route: 065

REACTIONS (8)
  - Akathisia [Unknown]
  - Tremor [Unknown]
  - Seizure [Unknown]
  - Tardive dyskinesia [Unknown]
  - Blood prolactin increased [Unknown]
  - Hyperglycaemia [Unknown]
  - Neutropenia [Unknown]
  - Weight increased [Unknown]
